FAERS Safety Report 7456293-X (Version None)
Quarter: 2011Q2

REPORT INFORMATION
  Report Type: 
  Country: None (occurrence: None)
  Receive Date: 20110426
  Receipt Date: 20110419
  Transmission Date: 20111010
  Serious: Yes (Other)
  Sender: FDA-Public Use
  Company Number: IPC201104-000688

PATIENT
  Sex: Female

DRUGS (3)
  1. REGLAN [Suspect]
     Dates: start: 20080801, end: 20100301
  2. METOCLOPRAMIDE [Suspect]
     Dates: start: 20080801, end: 20100301
  3. METOCLOPRAMIDE HYDROCHLORIDE [Suspect]
     Dates: start: 20080801, end: 20100301

REACTIONS (4)
  - MUSCLE SPASMS [None]
  - TREMOR [None]
  - RESTLESS LEGS SYNDROME [None]
  - ESSENTIAL TREMOR [None]
